FAERS Safety Report 6366459-8 (Version None)
Quarter: 2009Q3

REPORT INFORMATION
  Report Type: 
  Country: None (occurrence: None)
  Receive Date: 20090915
  Receipt Date: 20090113
  Transmission Date: 20100115
  Serious: Yes (Death)
  Sender: FDA-Public Use
  Company Number: AMI0010172

PATIENT
  Age: 4 Month
  Sex: Male

DRUGS (2)
  1. MEPHYTON [Suspect]
     Indication: HEPATIC FAILURE
  2. URSODIOL [Concomitant]

REACTIONS (7)
  - CRYING [None]
  - DECREASED ACTIVITY [None]
  - HEPATIC FAILURE [None]
  - HYPOGLYCAEMIA [None]
  - HYPOTHERMIA [None]
  - METABOLIC DISORDER [None]
  - MITOCHONDRIAL DNA DEPLETION [None]
